FAERS Safety Report 6456749-2 (Version None)
Quarter: 2009Q4

REPORT INFORMATION
  Report Type: 
  Country: None (occurrence: None)
  Receive Date: 20091124
  Receipt Date: 20091124
  Transmission Date: 20100525
  Serious: No
  Sender: FDA-Public Use
  Company Number: None

PATIENT
  Sex: Male
  Weight: 83.9154 kg

DRUGS (3)
  1. CIMZIA [Suspect]
     Indication: CROHN'S DISEASE
     Dosage: 400 MG DAY 0 SQ
     Route: 058
     Dates: start: 20091102, end: 20091102
  2. IMURAN [Concomitant]
  3. PREDNISONE [Concomitant]

REACTIONS (6)
  - FLUSHING [None]
  - INJECTION SITE ERYTHEMA [None]
  - INJECTION SITE SWELLING [None]
  - JOINT STIFFNESS [None]
  - MYALGIA [None]
  - PARAESTHESIA [None]
